FAERS Safety Report 21938151 (Version 1)
Quarter: 2023Q1

REPORT INFORMATION
  Report Type: Report from Study
  Country: US (occurrence: US)
  Receive Date: 20230201
  Receipt Date: 20230201
  Transmission Date: 20230417
  Serious: No
  Sender: FDA-Public Use
  Company Number: US-INCYTE CORPORATION-2021IN009293

PATIENT

DRUGS (1)
  1. PEMIGATINIB [Suspect]
     Active Substance: PEMIGATINIB
     Indication: Cholangiocarcinoma
     Dosage: 4.5 MILLIGRAM, QD AT 10PM
     Route: 048
     Dates: start: 20210923

REACTIONS (2)
  - Taste disorder [Unknown]
  - Vision blurred [Unknown]
